FAERS Safety Report 8532595-0 (Version None)
Quarter: 2012Q3

REPORT INFORMATION
  Report Type: 
  Country: None (occurrence: None)
  Receive Date: 20120724
  Receipt Date: 20120719
  Transmission Date: 20120928
  Serious: No
  Sender: FDA-Public Use
  Company Number: US-PFIZER INC-2012165694

PATIENT
  Sex: Male

DRUGS (4)
  1. VIAGRA [Interacting]
     Dosage: 25 MG, UNK
     Dates: start: 20120101
  2. LORTAB [Interacting]
     Dosage: UNK
  3. VIAGRA [Interacting]
     Dosage: 100 MG, ONCE
     Dates: start: 20120701
  4. VIAGRA [Suspect]
     Indication: ERECTILE DYSFUNCTION
     Dosage: 100 MG, AS NEEDED
     Route: 048
     Dates: start: 20120708

REACTIONS (2)
  - DRUG INTERACTION [None]
  - DRUG INEFFECTIVE [None]
